FAERS Safety Report 12775443 (Version 3)
Quarter: 2016Q4

REPORT INFORMATION
  Report Type: Report from Study
  Country: CA (occurrence: CA)
  Receive Date: 20160923
  Receipt Date: 20161227
  Transmission Date: 20170207
  Serious: Yes (Death, Other)
  Sender: FDA-Public Use
  Company Number: CA-JNJFOC-20160918309

PATIENT
  Age: 72 Year
  Sex: Male
  Weight: 68.1 kg

DRUGS (2)
  1. REMICADE [Suspect]
     Active Substance: INFLIXIMAB
     Indication: RHEUMATOID ARTHRITIS
     Route: 042
     Dates: start: 20070509, end: 20160913
  2. REMICADE [Suspect]
     Active Substance: INFLIXIMAB
     Indication: RHEUMATOID ARTHRITIS
     Route: 042
     Dates: end: 20160830

REACTIONS (7)
  - Wound infection [Not Recovered/Not Resolved]
  - Incorrect dose administered [Unknown]
  - Death [Fatal]
  - Off label use [Unknown]
  - Lung infection [Unknown]
  - Lung neoplasm malignant [Unknown]
  - Bladder cancer recurrent [Unknown]

NARRATIVE: CASE EVENT DATE: 20070509
